FAERS Safety Report 18529387 (Version 4)
Quarter: 2020Q4

REPORT INFORMATION
  Report Type: Report from Study
  Country: US (occurrence: US)
  Receive Date: 20201120
  Receipt Date: 20201228
  Transmission Date: 20210114
  Serious: Yes (Other)
  Sender: FDA-Public Use
  Company Number: US-009507513-2010USA002901

PATIENT
  Age: 81 Year
  Sex: Female
  Weight: 88 kg

DRUGS (16)
  1. PEMBROLIZUMAB. [Suspect]
     Active Substance: PEMBROLIZUMAB
     Dosage: 200 MG, EVERY THREE WEEKS (Q3W)
     Route: 042
     Dates: start: 20201023, end: 20201023
  2. PEMETREXED DISODIUM [Suspect]
     Active Substance: PEMETREXED DISODIUM
     Dosage: 900 MILLIGRAM, Q3WC1 D1 UP TO 4 TIMES
     Route: 042
     Dates: start: 20201120
  3. PRESERVISION AREDS [Concomitant]
     Active Substance: MINERALS\VITAMINS
     Dosage: UNK
  4. CARBOPLATIN. [Suspect]
     Active Substance: CARBOPLATIN
     Dosage: 443 MG, Q3W,C1 D1 UP TO 4 TIMES
     Route: 042
     Dates: start: 20201120
  5. ECOTRIN [Concomitant]
     Active Substance: ASPIRIN
     Dosage: TAKE 1 TABLET ORALLY DAILY
     Route: 048
  6. CHOLECALCIFEROL [Concomitant]
     Active Substance: CHOLECALCIFEROL
     Dosage: TAKE 1 TABLET ORALLY DAILY
     Route: 048
  7. COQ [Concomitant]
     Dosage: UNK
  8. ASPIRIN. [Concomitant]
     Active Substance: ASPIRIN
     Dosage: UNK
  9. VITAMINS (UNSPECIFIED) [Concomitant]
     Active Substance: VITAMINS
     Dosage: UNK
  10. TENORMIN [Concomitant]
     Active Substance: ATENOLOL
     Dosage: TAKE 1 TABLET BY MOUTH DAILY
     Route: 048
  11. FISH OIL [Concomitant]
     Active Substance: FISH OIL
     Dosage: TAKE I TABLET (1,000 MG (120 MG-180 MG)) ORALLY DAILY PER PATIENT REPORT
     Route: 048
  12. PEMBROLIZUMAB. [Suspect]
     Active Substance: PEMBROLIZUMAB
     Indication: NON-SMALL CELL LUNG CANCER
     Dosage: 200 MG, EVERY THREE WEEKS (Q3W)
     Route: 042
     Dates: start: 20200911, end: 20200911
  13. PEMBROLIZUMAB. [Suspect]
     Active Substance: PEMBROLIZUMAB
     Dosage: 200 MG, EVERY THREE WEEKS (Q3W)
     Route: 042
     Dates: start: 20201002, end: 20201002
  14. PEMBROLIZUMAB. [Suspect]
     Active Substance: PEMBROLIZUMAB
     Dosage: C1 D1 2 MG/KG/DOSE, 176 MG, Q3WUP TO 4 TIMES
     Route: 042
     Dates: start: 20201120
  15. PROVENTIL [Suspect]
     Active Substance: ALBUTEROL
     Indication: DYSPNOEA
     Dosage: USE 3 ML VIA NEBULIZER EVERY 4 HOURS AS NEEDED
     Dates: start: 2020
  16. LIPITOR [Concomitant]
     Active Substance: ATORVASTATIN CALCIUM
     Dosage: TAKE 1 TABLET BY MOUTH DAILY
     Route: 048

REACTIONS (23)
  - Diarrhoea [Unknown]
  - Feeling jittery [Unknown]
  - Panic attack [Unknown]
  - Polyuria [Unknown]
  - Pulmonary hilar enlargement [Unknown]
  - Skin exfoliation [Unknown]
  - Malaise [Unknown]
  - Peripheral swelling [Not Recovered/Not Resolved]
  - Erythema [Unknown]
  - Rash macular [Unknown]
  - Incorrect dose administered [Unknown]
  - Malignant neoplasm progression [Unknown]
  - General physical condition abnormal [Unknown]
  - Asthenia [Unknown]
  - Dry skin [Unknown]
  - Nausea [Unknown]
  - Constipation [Unknown]
  - Hypoxia [Unknown]
  - Nervousness [Unknown]
  - Malignant pleural effusion [Unknown]
  - Lung infiltration malignant [Unknown]
  - Laziness [Unknown]
  - Therapy non-responder [Unknown]

NARRATIVE: CASE EVENT DATE: 2020
